FAERS Safety Report 8513062-7 (Version None)
Quarter: 2012Q3

REPORT INFORMATION
  Report Type: 
  Country: None (occurrence: None)
  Receive Date: 20120705
  Receipt Date: 20120620
  Transmission Date: 20120928
  Serious: Yes (Hospitalization, Other)
  Sender: FDA-Public Use
  Company Number: FK201201783

PATIENT
  Age: 62 Year
  Sex: Female
  Weight: 61.5 kg

DRUGS (6)
  1. AVASTIN [Suspect]
     Indication: COLON CANCER METASTATIC
     Dosage: 312.5 MG, 2 IN 1 WK, INTRAVENOUS
     Route: 042
     Dates: start: 20111115, end: 20120313
  2. AMLODIPINE [Concomitant]
  3. FLUOROURACIL [Suspect]
     Indication: COLON CANCER METASTATIC
     Dosage: 550 MG, 2 IN 1 WK, INTRAVENOUS
     Route: 042
     Dates: start: 20111101, end: 20120313
  4. IRINOTECAN HCL [Suspect]
     Indication: COLON CANCER METASTATIC
     Dosage: 300 MG, 2 IN 1 WK, INTRAVENOUS
     Route: 042
  5. LANSOPRAZOLE [Concomitant]
  6. CO-DYDRAMOL (PARAMOL-118) [Concomitant]

REACTIONS (8)
  - MALAISE [None]
  - PULMONARY EMBOLISM [None]
  - VOMITING [None]
  - INTESTINAL OBSTRUCTION [None]
  - UPPER GASTROINTESTINAL HAEMORRHAGE [None]
  - INTESTINAL DILATATION [None]
  - ABDOMINAL PAIN [None]
  - HYPOTENSION [None]
